FAERS Safety Report 7385315-X (Version None)
Quarter: 2011Q1

REPORT INFORMATION
  Report Type: 
  Country: None (occurrence: None)
  Receive Date: 20110330
  Receipt Date: 20100701
  Transmission Date: 20110831
  Serious: No
  Sender: FDA-Public Use
  Company Number: US-MYLANLABS-2010S1012038

PATIENT
  Age: 63 Year
  Sex: Female
  Weight: 115.21 kg

DRUGS (1)
  1. EMSAM [Suspect]
     Route: 062
     Dates: start: 20100601

REACTIONS (2)
  - ANGER [None]
  - ILLOGICAL THINKING [None]
